FAERS Safety Report 14856709 (Version 2)
Quarter: 2021Q2

REPORT INFORMATION
  Report Type: Spontaneous
  Country: US (occurrence: US)
  Receive Date: 20180507
  Receipt Date: 20210505
  Transmission Date: 20210716
  Serious: No
  Sender: FDA-Public Use
  Company Number: US-ROCHE-2050329

PATIENT
  Age: 79 Year
  Sex: Male

DRUGS (15)
  1. NITROGLYCERIN. [Concomitant]
     Active Substance: NITROGLYCERIN
  2. ESBRIET [Suspect]
     Active Substance: PIRFENIDONE
     Indication: IDIOPATHIC PULMONARY FIBROSIS
     Dosage: 3 TAB BY MOUTH 3 TIMES A DAY WITH FOOD
     Route: 048
     Dates: start: 20171129
  3. PANTOPRAZOLE [Concomitant]
     Active Substance: PANTOPRAZOLE
  4. TORSEMIDE. [Concomitant]
     Active Substance: TORSEMIDE
  5. KEPPRA [Concomitant]
     Active Substance: LEVETIRACETAM
  6. ESBRIET [Suspect]
     Active Substance: PIRFENIDONE
     Dosage: 3 TAB BY MOUTH 3 TIMES A DAY WITH FOOD
     Route: 048
     Dates: start: 20171130
  7. ESBRIET [Suspect]
     Active Substance: PIRFENIDONE
     Dosage: THREE TABLETS THREE TIMES A DAY
     Route: 048
     Dates: start: 201811, end: 202102
  8. DIGOXIN. [Concomitant]
     Active Substance: DIGOXIN
  9. LIPITOR [Concomitant]
     Active Substance: ATORVASTATIN CALCIUM
  10. METFORMIN HCL [Concomitant]
     Active Substance: METFORMIN HYDROCHLORIDE
  11. WARFARIN SODIUM. [Concomitant]
     Active Substance: WARFARIN SODIUM
  12. METOPROLOL. [Concomitant]
     Active Substance: METOPROLOL
  13. CIPROFLOXACIN. [Concomitant]
     Active Substance: CIPROFLOXACIN
  14. ALDACTONE [Concomitant]
     Active Substance: SPIRONOLACTONE
  15. TYLENOL [Concomitant]
     Active Substance: ACETAMINOPHEN

REACTIONS (4)
  - Decreased appetite [Not Recovered/Not Resolved]
  - Decreased appetite [Unknown]
  - Ulcer [Not Recovered/Not Resolved]
  - Weight decreased [Unknown]

NARRATIVE: CASE EVENT DATE: 20210222
